FAERS Safety Report 8559442-5 (Version None)
Quarter: 2012Q3

REPORT INFORMATION
  Report Type: 
  Country: None (occurrence: None)
  Receive Date: 20120720
  Receipt Date: 20120705
  Transmission Date: 20120928
  Serious: Yes (Hospitalization)
  Sender: FDA-Public Use
  Company Number: DSA_58486_2012

PATIENT
  Sex: Female

DRUGS (9)
  1. CYCLOPHOSPHAMIDE [Suspect]
     Indication: BREAST CANCER
     Dosage: (800 MG; EVERY CYCLE), (800 MG; EVERY CYCLE)
     Dates: start: 20091029, end: 20091029
  2. CYCLOPHOSPHAMIDE [Suspect]
     Indication: BREAST CANCER
     Dosage: (800 MG; EVERY CYCLE), (800 MG; EVERY CYCLE)
     Dates: start: 20100104, end: 20100104
  3. ONDANSETRON [Concomitant]
  4. LENOGRASTIM [Concomitant]
  5. DEXAMETHASONE [Concomitant]
  6. FLUOROURACIL [Suspect]
     Indication: BREAST CANCER
     Dosage: (800 MG; EVERY CYCLE), (800 MG; EVERY CYCLE)
     Dates: start: 20100104, end: 20100104
  7. FLUOROURACIL [Suspect]
     Indication: BREAST CANCER
     Dosage: (800 MG; EVERY CYCLE), (800 MG; EVERY CYCLE)
     Dates: start: 20091029, end: 20091029
  8. EPIRUBICIN [Suspect]
     Indication: BREAST CANCER
     Dosage: (150 MG; EVERY CYCLE), (150 MG; EVERY CYCLE)
     Dates: start: 20100104, end: 20100104
  9. EPIRUBICIN [Suspect]
     Indication: BREAST CANCER
     Dosage: (150 MG; EVERY CYCLE), (150 MG; EVERY CYCLE)
     Dates: start: 20091029, end: 20091029

REACTIONS (1)
  - FEBRILE NEUTROPENIA [None]
